FAERS Safety Report 6344781-9 (Version None)
Quarter: 2009Q3

REPORT INFORMATION
  Report Type: 
  Country: None (occurrence: None)
  Receive Date: 20090908
  Receipt Date: 20090905
  Transmission Date: 20100115
  Serious: Yes (Death, Life-Threatening)
  Sender: FDA-Public Use
  Company Number: CN-B.I. PHARMACEUTICALS,INC./RIDGEFIELD-2009-SG-00487SG

PATIENT
  Age: 72 Year
  Sex: Female
  Weight: 67 kg

DRUGS (1)
  1. ACTILYSE INJECTION [Suspect]
     Indication: CEREBRAL INFARCTION
     Dosage: FREEZE POWDER FOR INJECTION; 09MG/KG/DAY
     Route: 042
     Dates: start: 20090831, end: 20090831

REACTIONS (2)
  - BASAL GANGLIA HAEMORRHAGE [None]
  - BRAIN HERNIATION [None]
